FAERS Safety Report 24085995 (Version 1)
Quarter: 2024Q3

REPORT INFORMATION
  Report Type: Spontaneous
  Country: CN (occurrence: CN)
  Receive Date: 20240712
  Receipt Date: 20240712
  Transmission Date: 20241017
  Serious: Yes (Other)
  Sender: MERCK
  Company Number: CN-009507513-2407CHN002567

PATIENT
  Age: 69 Year
  Sex: Male

DRUGS (3)
  1. PEMBROLIZUMAB [Suspect]
     Active Substance: PEMBROLIZUMAB
     Indication: Non-small cell lung cancer
     Dosage: 200 MILLIGRAM/DAY, EVERY 3 WEEKS
  2. PACLITAXEL [Suspect]
     Active Substance: PACLITAXEL
     Indication: Non-small cell lung cancer
     Dosage: 400 MILLIGRAM/DAY 1, Q3W
  3. NEDAPLATIN [Suspect]
     Active Substance: NEDAPLATIN
     Indication: Non-small cell lung cancer
     Dosage: 70 MILLIGRAM/DAY 1 AND DAY 2 EVERY 3 WEEKS

REACTIONS (4)
  - Neurotoxicity [Unknown]
  - Drug resistance [Unknown]
  - Product use in unapproved indication [Unknown]
  - Off label use [Unknown]
